FAERS Safety Report 6998001-2 (Version None)
Quarter: 2010Q3

REPORT INFORMATION
  Report Type: 
  Country: None (occurrence: None)
  Receive Date: 20100920
  Receipt Date: 20100517
  Transmission Date: 20110219
  Serious: Yes (Other)
  Sender: FDA-Public Use
  Company Number: US-ASTRAZENECA-2010SE24816

PATIENT
  Age: 19150 Day
  Sex: Male
  Weight: 86.2 kg

DRUGS (4)
  1. SEROQUEL [Suspect]
     Route: 048
     Dates: start: 20040115
  2. WELLBUTRIN [Concomitant]
     Route: 048
     Dates: start: 20031215
  3. AMBIEN [Concomitant]
     Route: 048
     Dates: start: 20031212
  4. PAXIL CR [Concomitant]
     Route: 048
     Dates: start: 20040115

REACTIONS (3)
  - ABDOMINAL PAIN [None]
  - PANCREATITIS [None]
  - PEPTIC ULCER [None]
